FAERS Safety Report 4707548-0 (Version None)
Quarter: 2005Q3

REPORT INFORMATION
  Report Type: 
  Country: None (occurrence: None)
  Receive Date: 20050706
  Receipt Date: 20050620
  Transmission Date: 20060218
  Serious: Yes (Death)
  Sender: FDA-Public Use
  Company Number: KR-JNJFOC-20050604790

PATIENT
  Sex: Male
  Weight: 60 kg

DRUGS (6)
  1. SPORANOX [Suspect]
     Route: 042
  2. SPORANOX [Suspect]
     Route: 042
  3. CARBENIN [Concomitant]
     Route: 042
     Dates: start: 20041215, end: 20041231
  4. CARBENIN [Concomitant]
     Route: 042
     Dates: start: 20041215, end: 20041231
  5. VANCOMYCIN [Concomitant]
     Route: 042
     Dates: start: 20041217, end: 20041231
  6. NETILMICIN SULFATE [Concomitant]
     Route: 042

REACTIONS (2)
  - THROMBOCYTOPENIA [None]
  - UPPER GASTROINTESTINAL HAEMORRHAGE [None]
